FAERS Safety Report 7523385-6 (Version None)
Quarter: 2011Q2

REPORT INFORMATION
  Report Type: 
  Country: None (occurrence: None)
  Receive Date: 20110603
  Receipt Date: 20110518
  Transmission Date: 20111010
  Serious: Yes (Hospitalization)
  Sender: FDA-Public Use
  Company Number: B0722394A

PATIENT
  Age: 49 Year
  Sex: Female
  Weight: 70 kg

DRUGS (3)
  1. DOXORUBICIN HCL [Suspect]
     Indication: BREAST CANCER
     Dosage: 110MG EVERY 3 WEEKS
     Route: 042
     Dates: start: 20110504
  2. LAPATINIB [Suspect]
     Indication: BREAST CANCER
     Dosage: 1250MG PER DAY
     Route: 048
     Dates: start: 20110504
  3. PACLITAXEL [Suspect]
     Indication: BREAST CANCER
     Dosage: 322MG EVERY 3 WEEKS
     Route: 042
     Dates: start: 20110504

REACTIONS (1)
  - FEBRILE NEUTROPENIA [None]
